FAERS Safety Report 8774726 (Version 2)
Quarter: 2012Q4

REPORT INFORMATION
  Report Type: 
  Country: US (occurrence: US)
  Receive Date: 20120910
  Receipt Date: 20121105
  Transmission Date: 20130627
  Serious: No
  Sender: FDA-Public Use
  Company Number: US-PFIZER INC-2012221120

PATIENT
  Age: 54 Year
  Sex: Female
  Weight: 65.76 kg

DRUGS (3)
  1. CHANTIX [Suspect]
     Indication: SMOKING CESSATION THERAPY
     Dosage: 1 mg, daily
     Route: 048
     Dates: start: 201208, end: 2012
  2. CHANTIX [Suspect]
     Dosage: 1 mg, 2x/day
     Route: 048
     Dates: start: 2012, end: 20120905
  3. ESTRADIOL [Concomitant]
     Indication: HORMONAL IMBALANCE
     Dosage: 2 mg,daily

REACTIONS (4)
  - Feeling jittery [Not Recovered/Not Resolved]
  - Insomnia [Not Recovered/Not Resolved]
  - Abdominal discomfort [Not Recovered/Not Resolved]
  - Drug intolerance [Unknown]
